FAERS Safety Report 4796517-0 (Version None)
Quarter: 2005Q4

REPORT INFORMATION
  Report Type: 
  Country: None (occurrence: None)
  Receive Date: 20051013
  Receipt Date: 20051010
  Transmission Date: 20060501
  Serious: Yes (Hospitalization, Other)
  Sender: FDA-Public Use
  Company Number: 200517155US

PATIENT
  Age: 75 Year
  Sex: Male
  Weight: 63 kg

DRUGS (4)
  1. TAXOTERE [Suspect]
     Indication: PROSTATE CANCER
     Dates: start: 20050101, end: 20050101
  2. LUPRON [Concomitant]
     Dosage: DOSE: NOT PROVIDED
  3. CARDIOVASCULAR SYSTEM DRUGS [Concomitant]
     Dosage: DOSE: NOT PROVIDED
  4. UNKNOWN DRUG [Concomitant]
     Dosage: DOSE: NOT PROVIDED

REACTIONS (5)
  - AZOTAEMIA [None]
  - BLOOD CREATININE INCREASED [None]
  - BLOOD UREA INCREASED [None]
  - RENAL TUBULAR ACIDOSIS [None]
  - URINARY TRACT OBSTRUCTION [None]
